FAERS Safety Report 7302017-6 (Version None)
Quarter: 2011Q1

REPORT INFORMATION
  Report Type: 
  Country: None (occurrence: None)
  Receive Date: 20110208
  Receipt Date: 20110128
  Transmission Date: 20110831
  Serious: Yes (Other)
  Sender: FDA-Public Use
  Company Number: DSU-2011-00754

PATIENT
  Sex: Male
  Weight: 86.1834 kg

DRUGS (2)
  1. NORVASC (AMLODIPINE BESILATE) (5 MILLIGRAM) (AMLODIPINE BESILATE) [Concomitant]
  2. BENICAR HCT [Suspect]
     Indication: HYPERTENSION
     Dosage: 40/25MG (QD),PER ORAL
     Route: 048
     Dates: start: 20070101, end: 20110101

REACTIONS (2)
  - CARDIAC ABLATION [None]
  - ECONOMIC PROBLEM [None]
